FAERS Safety Report 10178288 (Version 2)
Quarter: 2014Q2

REPORT INFORMATION
  Report Type: Report from Study
  Country: CN (occurrence: CN)
  Receive Date: 20140519
  Receipt Date: 20140522
  Transmission Date: 20141212
  Serious: Yes (Death)
  Sender: FDA-Public Use
  Company Number: PHHY2014CN059818

PATIENT
  Sex: Male

DRUGS (4)
  1. GLIVEC [Suspect]
     Indication: GASTROINTESTINAL STROMAL TUMOUR
     Dosage: 400 MG, QD
     Route: 048
     Dates: start: 20110518, end: 20140201
  2. AMINO ACID [Concomitant]
     Dosage: UNK UKN, UNK
  3. MULTIVITAMIN//VITAMINS NOS [Concomitant]
     Dosage: UNK UKN, UNK
  4. NUTRITION SUPPLEMENTS [Concomitant]
     Dosage: UNK UKN, UNK

REACTIONS (2)
  - Metastases to liver [Fatal]
  - Hepatic failure [Fatal]
